FAERS Safety Report 6247558-8 (Version None)
Quarter: 2009Q2

REPORT INFORMATION
  Report Type: 
  Country: None (occurrence: None)
  Receive Date: 20090626
  Receipt Date: 20090616
  Transmission Date: 20091009
  Serious: Yes (Hospitalization)
  Sender: FDA-Public Use
  Company Number: US-PFIZER INC-2009194747

PATIENT
  Sex: Male
  Weight: 136.4 kg

DRUGS (19)
  1. BLINDED *NO SUBJECT DRUG [Suspect]
     Indication: PULMONARY HYPERTENSION
     Dosage: UNK MG, 3X/DAY
     Route: 048
     Dates: start: 20090225, end: 20090322
  2. BLINDED *PLACEBO [Suspect]
     Indication: PULMONARY HYPERTENSION
     Dosage: UNK MG, 3X/DAY
     Route: 048
     Dates: start: 20090225, end: 20090322
  3. BLINDED SILDENAFIL CITRATE [Suspect]
     Indication: PULMONARY HYPERTENSION
     Dosage: UNK MG, 3X/DAY
     Route: 048
     Dates: start: 20090225, end: 20090322
  4. BLINDED *NO SUBJECT DRUG [Suspect]
     Dosage: UNK MG, 3X/DAY
     Route: 048
     Dates: start: 20090401
  5. BLINDED *PLACEBO [Suspect]
     Dosage: UNK MG, 3X/DAY
     Route: 048
     Dates: start: 20090401
  6. BLINDED SILDENAFIL CITRATE [Suspect]
     Dosage: UNK MG, 3X/DAY
     Route: 048
     Dates: start: 20090401
  7. WARFARIN [Concomitant]
     Indication: THROMBOSIS
     Dosage: 5 MG, 1X/DAY
     Route: 048
  8. HYDROXYUREA [Concomitant]
     Indication: SICKLE CELL ANAEMIA
     Dosage: 1500 MG, 1X/DAY
     Route: 048
  9. DIGOXIN [Concomitant]
     Indication: HEART RATE ABNORMAL
     Dosage: 0.125 MG, 1X/DAY
     Route: 048
  10. GABAPENTIN [Concomitant]
     Indication: CEREBROVASCULAR ACCIDENT
     Dosage: 800 MG, 1 IN 8 HR
     Route: 048
     Dates: start: 20060704
  11. POTASSIUM CHLORIDE [Concomitant]
     Indication: ELECTROLYTE SUBSTITUTION THERAPY
     Dosage: 10 MEQ, 1X/DAY
     Route: 048
  12. FUROSEMIDE [Concomitant]
     Indication: BLOOD PRESSURE
     Dosage: 40 MG, 1X/DAY
     Route: 048
     Dates: end: 20090326
  13. FUROSEMIDE [Concomitant]
     Dosage: 40 MG, 2X/DAY
     Route: 048
     Dates: start: 20090326
  14. MAGNESIUM OXIDE [Concomitant]
     Indication: SUPPLEMENTATION THERAPY
     Dosage: 800 MG, 1X/DAY
     Route: 048
  15. BUPROPION [Concomitant]
     Indication: DEPRESSION
     Dosage: 100 MG, 1X/DAY
     Route: 048
     Dates: end: 20090421
  16. ENALAPRIL [Concomitant]
     Indication: HYPERTENSION
     Dosage: 20 MG, 1X/DAY
     Route: 048
  17. ALPRAZOLAM [Concomitant]
     Indication: ANXIETY
     Dosage: 1 MG, AS NEEDED
     Route: 048
  18. OXYCET [Concomitant]
     Indication: ANALGESIA
     Dosage: 10/650 MG
     Route: 048
  19. TRAZODONE [Concomitant]
     Indication: SOMNOLENCE
     Dosage: AT BEDTIME
     Route: 048

REACTIONS (1)
  - CARDIAC FAILURE CONGESTIVE [None]
